FAERS Safety Report 19447836 (Version 1)
Quarter: 2021Q2

REPORT INFORMATION
  Report Type: Spontaneous
  Country: FR (occurrence: FR)
  Receive Date: 20210622
  Receipt Date: 20210622
  Transmission Date: 20210717
  Serious: Yes (Death)
  Sender: FDA-Public Use
  Company Number: FR-TEVA-2021-FR-1923313

PATIENT
  Age: 60 Year
  Sex: Male
  Weight: 101 kg

DRUGS (5)
  1. VALIUM [Suspect]
     Active Substance: DIAZEPAM
     Indication: AGITATION
     Dosage: 30 GTT
     Route: 048
     Dates: start: 20210404
  2. RISPERIDONE. [Suspect]
     Active Substance: RISPERIDONE
     Indication: PARANOIA
     Dosage: 6 MILLIGRAM DAILY; 2MG MORNING AND 4MG EVENING
     Route: 048
     Dates: start: 202104, end: 20210503
  3. TIAPRIDAL, SOLUTION BUVABLE EN GOUTTES [Suspect]
     Active Substance: TIAPRIDE HYDROCHLORIDE
     Indication: PARANOIA
     Dosage: 200 MILLIGRAM DAILY; 100 MG MORNING AND EVENING
     Route: 048
     Dates: start: 202104
  4. NEBIVOLOL. [Concomitant]
     Active Substance: NEBIVOLOL
  5. COMIRNATY [Suspect]
     Active Substance: TOZINAMERAN
     Indication: COVID-19 IMMUNISATION
     Dosage: 1 DF
     Route: 030
     Dates: start: 20210416, end: 20210416

REACTIONS (1)
  - Sudden death [Fatal]

NARRATIVE: CASE EVENT DATE: 20210505
